FAERS Safety Report 7908459 (Version 2)
Quarter: 2014Q2

REPORT INFORMATION
  Report Type: Report from Study
  Country: JP (occurrence: JP)
  Receive Date: 20110421
  Receipt Date: 20140609
  Transmission Date: 20141212
  Serious: Yes (Hospitalization, Disabling)
  Sender: FDA-Public Use
  Company Number: JP-SANOFI-AVENTIS-2011SA022046

PATIENT
  Age: 86 Year
  Sex: 0

DRUGS (2)
  1. TAXOTERE [Suspect]
     Indication: PROSTATE CANCER
     Route: 041
     Dates: start: 20080720, end: 20090203
  2. DEXAMETHASONE [Suspect]
     Indication: PROSTATE CANCER
     Route: 065

REACTIONS (1)
  - Cerebral haemorrhage [Unknown]
